FAERS Safety Report 5879444-7 (Version None)
Quarter: 2008Q3

REPORT INFORMATION
  Report Type: 
  Country: None (occurrence: None)
  Receive Date: 20080912
  Receipt Date: 20080905
  Transmission Date: 20090109
  Serious: Yes (Other)
  Sender: FDA-Public Use
  Company Number: B0536764A

PATIENT
  Age: 52 Year
  Sex: Female

DRUGS (2)
  1. MALARONE [Suspect]
     Indication: PROPHYLAXIS
     Route: 048
     Dates: start: 20080701, end: 20080701
  2. ANTIHYPERTENSIVE [Concomitant]

REACTIONS (11)
  - ALANINE AMINOTRANSFERASE INCREASED [None]
  - ASPARTATE AMINOTRANSFERASE INCREASED [None]
  - ASTHENIA [None]
  - BLOOD CHOLESTEROL INCREASED [None]
  - CREATININE RENAL CLEARANCE INCREASED [None]
  - EYE INFLAMMATION [None]
  - FATIGUE [None]
  - GASTRIC DISORDER [None]
  - INFLAMMATION [None]
  - NAUSEA [None]
  - SKIN INFLAMMATION [None]
